FAERS Safety Report 7115875-5 (Version None)
Quarter: 2010Q4

REPORT INFORMATION
  Report Type: 
  Country: None (occurrence: None)
  Receive Date: 20101122
  Receipt Date: 20101108
  Transmission Date: 20110411
  Serious: Yes (Hospitalization)
  Sender: FDA-Public Use
  Company Number: US-ELI_LILLY_AND_COMPANY-US201009007190

PATIENT
  Age: 59 Year
  Sex: Female

DRUGS (1)
  1. FORTEO [Suspect]

REACTIONS (5)
  - BRONCHITIS [None]
  - COUGH [None]
  - FEELING ABNORMAL [None]
  - HOSPITALISATION [None]
  - INFLUENZA LIKE ILLNESS [None]
